FAERS Safety Report 4591171-5 (Version None)
Quarter: 2005Q1

REPORT INFORMATION
  Report Type: 
  Country: None (occurrence: None)
  Receive Date: 20050224
  Receipt Date: 20050224
  Transmission Date: 20050727
  Serious: Yes (Other)
  Sender: FDA-Public Use
  Company Number: None

PATIENT
  Sex: Female
  Weight: 107.0489 kg

DRUGS (2)
  1. GABAPENTIN [Suspect]
     Indication: HEADACHE
     Dosage: 300MG 3X DAILY
     Dates: start: 20041101
  2. GABAPENTIN [Suspect]
     Indication: PROPHYLAXIS
     Dosage: 300MG 3X DAILY
     Dates: start: 20041101

REACTIONS (3)
  - DIZZINESS [None]
  - HEADACHE [None]
  - PHARMACEUTICAL PRODUCT COMPLAINT [None]
